FAERS Safety Report 9894730 (Version 1)
Quarter: 2014Q1

REPORT INFORMATION
  Report Type: Report from Study
  Country: US (occurrence: US)
  Receive Date: 20140213
  Receipt Date: 20140213
  Transmission Date: 20141002
  Serious: Yes (Other)
  Sender: FDA-Public Use
  Company Number: US-ABBVIE-14P-163-1197888-00

PATIENT
  Age: 23 Year
  Sex: Male
  Weight: 70.37 kg

DRUGS (3)
  1. HUMIRA [Suspect]
     Indication: CROHN^S DISEASE
     Dates: start: 201008, end: 201008
  2. HUMIRA [Suspect]
     Dosage: TWO WEEKS AFTER 160 MG DOSE
     Dates: start: 2010, end: 2010
  3. HUMIRA [Suspect]
     Dosage: STARTED FOUR WEEKS AFTER 160 MG DOSE
     Dates: start: 2010, end: 201304

REACTIONS (6)
  - Rectal haemorrhage [Recovered/Resolved]
  - Haemoglobin decreased [Recovered/Resolved]
  - Blood iron decreased [Recovered/Resolved]
  - Large intestinal stenosis [Recovered/Resolved]
  - Intestinal ischaemia [Recovered/Resolved]
  - Crohn^s disease [Not Recovered/Not Resolved]
